FAERS Safety Report 11770484 (Version 2)
Quarter: 2015Q4

REPORT INFORMATION
  Report Type: Spontaneous
  Country: US (occurrence: US)
  Receive Date: 20151123
  Receipt Date: 20151123
  Transmission Date: 20160304
  Serious: No
  Sender: FDA-Public Use
  Company Number: US-PERRIGO-15US008405

PATIENT
  Age: 68 Year
  Sex: Female
  Weight: 72.56 kg

DRUGS (4)
  1. HORMONES AND RELATED AGENTS [Concomitant]
     Active Substance: UNSPECIFIED INGREDIENT
     Indication: HORMONE THERAPY
     Dosage: ONCE MONTHLY
     Route: 065
  2. POLYETHYLENE GLYCOL 3350. [Suspect]
     Active Substance: POLYETHYLENE GLYCOL 3350
     Indication: CONSTIPATION
     Dosage: 17 G, QD
     Route: 048
     Dates: start: 20150807, end: 20150811
  3. DIURETICS [Concomitant]
     Active Substance: UNSPECIFIED INGREDIENT
     Indication: ABDOMINAL DISTENSION
     Dosage: UNK
     Route: 065
  4. LORAZEPAM. [Concomitant]
     Active Substance: LORAZEPAM
     Indication: SLEEP APNOEA SYNDROME
     Dosage: UNK
     Route: 065

REACTIONS (2)
  - Pruritus [Recovering/Resolving]
  - Acne [Recovering/Resolving]

NARRATIVE: CASE EVENT DATE: 20150810
